FAERS Safety Report 6993432-9 (Version None)
Quarter: 2010Q3

REPORT INFORMATION
  Report Type: 
  Country: None (occurrence: None)
  Receive Date: 20100917
  Receipt Date: 20100706
  Transmission Date: 20110219
  Serious: Yes (Other)
  Sender: FDA-Public Use
  Company Number: US-ASTRAZENECA-2010SE05136

PATIENT
  Sex: Male

DRUGS (1)
  1. SEROQUEL XR [Suspect]
     Route: 048
     Dates: end: 20100107

REACTIONS (4)
  - CARDIAC DISORDER [None]
  - CONVULSION [None]
  - DRUG DOSE OMISSION [None]
  - DYSPNOEA [None]
